FAERS Safety Report 14719355 (Version 2)
Quarter: 2018Q2

REPORT INFORMATION
  Report Type: Report from Study
  Country: NL (occurrence: NL)
  Receive Date: 20180405
  Receipt Date: 20180503
  Transmission Date: 20180711
  Serious: Yes (Hospitalization, Other)
  Sender: FDA-Public Use
  Company Number: NL-AMGEN-NLDSL2018044843

PATIENT
  Age: 78 Year
  Sex: Male

DRUGS (18)
  1. ACETYLSALICYLZUUR [Concomitant]
     Active Substance: ASPIRIN
     Dosage: 80 MG, QD
  2. XTANDI [Concomitant]
     Active Substance: ENZALUTAMIDE
     Dosage: 40 X 1 X 4
  3. GOSERELINE [Concomitant]
     Active Substance: GOSERELIN
     Dosage: E10.8 UNK, Q3MO
  4. METOPROLOLSUCCINAAT [Concomitant]
     Active Substance: METOPROLOL SUCCINATE
     Dosage: 100 X 1 X 1
  5. PERINDOPRIL [Concomitant]
     Active Substance: PERINDOPRIL
     Dosage: 4 X 1 X 1
  6. CALCIUM [Concomitant]
     Active Substance: CALCIUM
     Dosage: UNK
  7. NITROSPRAY [Concomitant]
     Active Substance: NITROGLYCERIN
     Dosage: UNK UNK, AS NECESSARY
  8. BRILIQUE [Concomitant]
     Active Substance: TICAGRELOR
     Dosage: 90 X 2 X 1
  9. XGEVA [Suspect]
     Active Substance: DENOSUMAB
     Indication: PROPHYLAXIS
     Dosage: 120 MG IN 1.70 ML, Q4WK
     Route: 058
  10. VESICARE [Concomitant]
     Active Substance: SOLIFENACIN SUCCINATE
     Dosage: 1 X 10, UNK
  11. XGEVA [Suspect]
     Active Substance: DENOSUMAB
     Dosage: 120 MG IN 1.70 ML, Q4WK
     Route: 058
  12. PANTOPRAZOL [Concomitant]
     Active Substance: PANTOPRAZOLE SODIUM
     Dosage: 40 X 1 X 1
  13. PRAVASTATINE [Concomitant]
     Active Substance: PRAVASTATIN
     Dosage: 40 X 1 X 1
  14. VAGRECOR [Concomitant]
     Dosage: 80 UNK, QD
  15. VALSARTAN/HYDROCHLORTHIAZID [Concomitant]
     Dosage: 1 X 80/12.5
  16. XGEVA [Suspect]
     Active Substance: DENOSUMAB
     Dosage: UNK
     Route: 058
  17. MACROGOL [Concomitant]
     Active Substance: POLYETHYLENE GLYCOLS
     Dosage: 1 DF, QD
  18. PROMOCARD [Concomitant]
     Active Substance: ISOSORBIDE MONONITRATE
     Dosage: 30 MG, UNK

REACTIONS (1)
  - Myocardial infarction [Not Recovered/Not Resolved]

NARRATIVE: CASE EVENT DATE: 20180222
